FAERS Safety Report 7994447-4 (Version None)
Quarter: 2011Q4

REPORT INFORMATION
  Report Type: 
  Country: None (occurrence: None)
  Receive Date: 20111220
  Receipt Date: 20111018
  Transmission Date: 20120403
  Serious: Yes (Other)
  Sender: FDA-Public Use
  Company Number: US-GLAXOSMITHKLINE-A0949543A

PATIENT

DRUGS (2)
  1. KEPPRA [Concomitant]
  2. LAMICTAL [Suspect]
     Indication: EPILEPSY
     Route: 048

REACTIONS (2)
  - RASH [None]
  - PYREXIA [None]
